FAERS Safety Report 16003696 (Version 3)
Quarter: 2019Q1

REPORT INFORMATION
  Report Type: Spontaneous
  Country: GB (occurrence: GB)
  Receive Date: 20190226
  Receipt Date: 20190330
  Transmission Date: 20190418
  Serious: Yes (Other)
  Sender: FDA-Public Use
  Company Number: GB-CELLTRION INC.-2019GB018910

PATIENT

DRUGS (1)
  1. RITUXIMAB (UNKNOWN) [Suspect]
     Active Substance: RITUXIMAB
     Indication: FOCAL SEGMENTAL GLOMERULOSCLEROSIS
     Dosage: 2 G, UNK (TOTAL OF 2 G OVER 2 INFUSIONS, 2 WEEKS APART)
     Route: 041

REACTIONS (3)
  - Urosepsis [Unknown]
  - Product use in unapproved indication [Unknown]
  - Ureteric stenosis [Unknown]
